FAERS Safety Report 21355656 (Version 3)
Quarter: 2022Q4

REPORT INFORMATION
  Report Type: Spontaneous
  Country: JP (occurrence: JP)
  Receive Date: 20220920
  Receipt Date: 20221011
  Transmission Date: 20230113
  Serious: Yes (Other)
  Sender: FDA-Public Use
  Company Number: JP-BAYER-2022A126956

PATIENT
  Age: 79 Year
  Sex: Female
  Weight: 57.5 kg

DRUGS (7)
  1. KERENDIA [Suspect]
     Active Substance: FINERENONE
     Indication: Chronic kidney disease
     Dosage: 10 MG, QD
     Route: 048
     Dates: start: 20220818, end: 20220901
  2. KERENDIA [Suspect]
     Active Substance: FINERENONE
     Indication: Type 2 diabetes mellitus
  3. KERENDIA [Suspect]
     Active Substance: FINERENONE
     Indication: Nephroprotective therapy
  4. OLMESARTAN [Concomitant]
     Active Substance: OLMESARTAN
     Indication: Blood pressure management
     Dosage: 10 MG, QD
     Route: 048
     Dates: start: 20220804, end: 20220901
  5. OLMESARTAN [Concomitant]
     Active Substance: OLMESARTAN
     Indication: Nephroprotective therapy
  6. FEBUXOSTAT [Concomitant]
     Active Substance: FEBUXOSTAT
     Indication: Blood uric acid increased
     Dosage: 10 MG, QD
     Route: 048
     Dates: start: 20220818
  7. FEBUXOSTAT [Concomitant]
     Active Substance: FEBUXOSTAT
     Indication: Nephroprotective therapy

REACTIONS (5)
  - Hyperkalaemia [Recovering/Resolving]
  - Renal impairment [Not Recovered/Not Resolved]
  - Blood creatinine increased [Not Recovered/Not Resolved]
  - Malaise [None]
  - Hypotension [Recovered/Resolved]

NARRATIVE: CASE EVENT DATE: 20220101
